FAERS Safety Report 8597992-6 (Version None)
Quarter: 2012Q3

REPORT INFORMATION
  Report Type: 
  Country: None (occurrence: None)
  Receive Date: 20120816
  Receipt Date: 20120806
  Transmission Date: 20120928
  Serious: Yes (Life-Threatening, Hospitalization, Other)
  Sender: FDA-Public Use
  Company Number: JP-BRISTOL-MYERS SQUIBB COMPANY-16766180

PATIENT
  Age: 48 Year
  Sex: Female
  Weight: 65 kg

DRUGS (6)
  1. ABILIFY [Suspect]
     Indication: MANIA
     Dosage: ABILIFY TABS 12MG,06JUN12-24JUN12;19D,19JUL12-25JUL12;7D REDUCED 24MG-18MG/D DECREASED 9MG/D,3MG
     Route: 048
     Dates: start: 20120606
  2. SILECE [Concomitant]
     Dosage: TABS
     Dates: start: 20120606, end: 20120710
  3. AKINETON [Suspect]
     Indication: PARKINSONISM
     Route: 048
     Dates: start: 20120704, end: 20120710
  4. ALPRAZOLAM [Concomitant]
     Dosage: TABS
     Dates: start: 20120606, end: 20120711
  5. LITHIUM CARBONATE [Concomitant]
     Dosage: TABS REDUCED FROM 800MG TO 400MG
     Route: 048
     Dates: start: 20120606, end: 20120628
  6. SEROQUEL [Suspect]
     Indication: INSOMNIA
     Dosage: 18JUN12-24JUN12;7DAYS,25JUN12-25JUL12;31D,TABS.REDUCED 100MG TO 50MG
     Route: 048
     Dates: start: 20120618, end: 20120725

REACTIONS (7)
  - BLOOD CREATINE PHOSPHOKINASE INCREASED [None]
  - PYREXIA [None]
  - FALL [None]
  - HYPERHIDROSIS [None]
  - BRADYKINESIA [None]
  - HYPOKALAEMIA [None]
  - PARKINSONISM [None]
